FAERS Safety Report 8549084-X (Version None)
Quarter: 2012Q3

REPORT INFORMATION
  Report Type: 
  Country: None (occurrence: None)
  Receive Date: 20120730
  Receipt Date: 20120726
  Transmission Date: 20120928
  Serious: Yes (Other)
  Sender: FDA-Public Use
  Company Number: US-PFIZER INC-2012182154

PATIENT
  Sex: Female
  Weight: 79.365 kg

DRUGS (3)
  1. EFFEXOR XR [Suspect]
     Dosage: 75 MG, DAILY
     Route: 048
     Dates: start: 19990101
  2. EFFEXOR XR [Suspect]
     Indication: DEPRESSION
     Dosage: 35MG, DAILY
     Route: 048
     Dates: start: 19980101
  3. EFFEXOR XR [Suspect]
     Dosage: 300 MG, DAILY
     Route: 048

REACTIONS (1)
  - HYPERTENSION [None]
